FAERS Safety Report 9632864 (Version 1)
Quarter: 2013Q4

REPORT INFORMATION
  Report Type: Spontaneous
  Country: IR (occurrence: IR)
  Receive Date: 20131018
  Receipt Date: 20131018
  Transmission Date: 20140711
  Serious: Yes (Hospitalization)
  Sender: FDA-Public Use
  Company Number: IR-009507513-1310IRN007760

PATIENT
  Age: 60 Year
  Sex: Female
  Weight: 75 kg

DRUGS (3)
  1. NOXAFIL [Suspect]
     Dosage: 200 MG, QID
     Dates: start: 20131006, end: 20131014
  2. MEROPENEM [Concomitant]
     Dosage: UNK
     Dates: start: 20130923, end: 20131012
  3. AMPHOTERICIN B [Concomitant]
     Dosage: UNK
     Dates: start: 20130928, end: 20131006

REACTIONS (2)
  - Thrombocytopenia [Unknown]
  - Platelet transfusion [Unknown]
